FAERS Safety Report 12681490 (Version 2)
Quarter: 2016Q3

REPORT INFORMATION
  Report Type: Spontaneous
  Country: CH (occurrence: IT)
  Receive Date: 20160824
  Receipt Date: 20160916
  Transmission Date: 20161109
  Serious: Yes (Other)
  Sender: FDA-Public Use
  Company Number: CH-LPDUSPRD-20160739

PATIENT
  Age: 42 Year
  Sex: Female
  Weight: 68 kg

DRUGS (2)
  1. FERINJECT [Suspect]
     Active Substance: FERRIC CARBOXYMALTOSE
     Dosage: 1000MG
     Route: 042
     Dates: start: 20160727, end: 20160727
  2. FERLIXIT [Suspect]
     Active Substance: SODIUM FERRIC GLUCONATE COMPLEX
     Dosage: 1 VIAL PER DAY FOR THREE DAYS
     Route: 042
     Dates: start: 20160722

REACTIONS (1)
  - Thrombocytopenia [Unknown]

NARRATIVE: CASE EVENT DATE: 20160731
